FAERS Safety Report 8037882-0 (Version None)
Quarter: 2012Q1

REPORT INFORMATION
  Report Type: 
  Country: None (occurrence: None)
  Receive Date: 20120111
  Receipt Date: 20120109
  Transmission Date: 20120608
  Serious: Yes (Hospitalization)
  Sender: FDA-Public Use
  Company Number: BE-ROCHE-1009079

PATIENT
  Sex: Female
  Weight: 40.4 kg

DRUGS (12)
  1. GRANULOCYTE COLONY STIMULATING FACTOR NOS [Suspect]
     Indication: DIFFUSE LARGE B-CELL LYMPHOMA
     Route: 042
     Dates: start: 20110927
  2. CYCLOPHOSPHAMIDE [Suspect]
     Indication: DIFFUSE LARGE B-CELL LYMPHOMA
     Route: 042
     Dates: start: 20110926
  3. MABTHERA [Suspect]
     Indication: DIFFUSE LARGE B-CELL LYMPHOMA
     Dosage: DATE OF LAST DOSE: 10/OCT /2011
     Route: 042
     Dates: start: 20110926
  4. MABTHERA [Suspect]
     Route: 042
     Dates: start: 20111024
  5. DOXORUBICIN HCL [Suspect]
     Indication: DIFFUSE LARGE B-CELL LYMPHOMA
     Route: 042
     Dates: start: 20110926
  6. PREDNISONE TAB [Suspect]
     Indication: DIFFUSE LARGE B-CELL LYMPHOMA
     Route: 048
     Dates: start: 20110926
  7. FRAXIPARINE [Concomitant]
     Indication: PROPHYLAXIS
     Route: 058
     Dates: start: 20110714, end: 20111102
  8. VINCRISTINE [Suspect]
     Indication: DIFFUSE LARGE B-CELL LYMPHOMA
     Route: 042
     Dates: start: 20110926
  9. MABTHERA [Suspect]
     Dosage: DATE OF LST DOSR: 24/OCT/2011
     Route: 042
     Dates: start: 20111010
  10. DAFLON (BELGIUM) [Concomitant]
     Indication: PROPHYLAXIS
     Route: 048
     Dates: start: 20110926, end: 20111102
  11. HYDROCORTISONE [Concomitant]
     Indication: ADRENAL INSUFFICIENCY
     Route: 048
     Dates: start: 20110727, end: 20111102
  12. ACYCLOVIR [Concomitant]
     Indication: PROPHYLAXIS
     Route: 048
     Dates: start: 20110714, end: 20111102

REACTIONS (1)
  - CENTRAL NERVOUS SYSTEM LYMPHOMA [None]
